FAERS Safety Report 4423190-3 (Version None)
Quarter: 2004Q3

REPORT INFORMATION
  Report Type: 
  Country: None (occurrence: None)
  Receive Date: 20040809
  Receipt Date: 20031212
  Transmission Date: 20050211
  Serious: Yes (Hospitalization, Other)
  Sender: FDA-Public Use
  Company Number: 2004052744

PATIENT
  Age: 69 Year
  Sex: Male

DRUGS (7)
  1. DILANTIN [Suspect]
     Indication: EPILEPSY
     Dosage: 100 MG ORAL
     Route: 048
     Dates: start: 20020909
  2. VALPROATE SODIUM [Suspect]
     Indication: ILL-DEFINED DISORDER
     Dosage: ORAL
     Route: 048
     Dates: start: 20021112
  3. SAFAPRYN (ACETYLSALICYLIC ACID, PARACETAMOL) [Concomitant]
  4. NIFEDIPINE [Concomitant]
  5. LORAZEPAM [Concomitant]
  6. PENTOXIFYLLINE (PENTOXYFYLLINE) [Concomitant]
  7. ALL OTHER THERAPEUTIC PRODUCTS (ALL OTHER THERAPEUTIC PRODUCTS) [Concomitant]

REACTIONS (7)
  - CEREBROVASCULAR ACCIDENT [None]
  - DIZZINESS [None]
  - DYSPNOEA [None]
  - GAIT DISTURBANCE [None]
  - OVERDOSE [None]
  - SUBDURAL EFFUSION [None]
  - VOMITING [None]
